FAERS Safety Report 11987669 (Version 1)
Quarter: 2016Q1

REPORT INFORMATION
  Report Type: Spontaneous
  Country: RS (occurrence: RS)
  Receive Date: 20160202
  Receipt Date: 20160202
  Transmission Date: 20160526
  Serious: Yes (Death, Life-Threatening, Hospitalization, Other)
  Sender: FDA-Public Use
  Company Number: RS-INDICUS PHARMA-000385

PATIENT
  Age: 24 Year
  Sex: Female

DRUGS (3)
  1. AMLODIPINE [Suspect]
     Active Substance: AMLODIPINE BESYLATE
     Indication: PRODUCT USED FOR UNKNOWN INDICATION
     Dosage: SHE INGESTED 30 TABLETS OF AMLODIPINE
     Route: 048
  2. METFORMIN [Suspect]
     Active Substance: METFORMIN HYDROCHLORIDE
     Indication: PRODUCT USED FOR UNKNOWN INDICATION
     Dosage: SHE INGESTED 20 TABLETS OF METFORMIN
     Route: 048
  3. GLICLAZIDE [Suspect]
     Active Substance: GLICLAZIDE
     Indication: PRODUCT USED FOR UNKNOWN INDICATION
     Dosage: SHE INGESTED 30 TABLETS OF GLICLAZIDE
     Route: 048

REACTIONS (9)
  - Hypoglycaemia [Unknown]
  - Hyperglycaemia [Unknown]
  - Cardiac arrest [Fatal]
  - Bundle branch block right [Unknown]
  - Atrioventricular block [Unknown]
  - Intentional overdose [Fatal]
  - Poisoning deliberate [Fatal]
  - Metabolic acidosis [Unknown]
  - Shock [Unknown]
